FAERS Safety Report 7461225-4 (Version None)
Quarter: 2011Q2

REPORT INFORMATION
  Report Type: 
  Country: None (occurrence: None)
  Receive Date: 20110506
  Receipt Date: 20110426
  Transmission Date: 20111010
  Serious: Yes (Death)
  Sender: FDA-Public Use
  Company Number: GB-AMGEN-GBRCT2010002031

PATIENT
  Age: 79 Year
  Sex: Female
  Weight: 44 kg

DRUGS (2)
  1. ETANERCEPT [Suspect]
     Indication: RHEUMATOID ARTHRITIS
     Dosage: 25 MG, 2 TIMES/WK
     Dates: start: 20031224
  2. METHOTREXATE [Concomitant]
     Dosage: UNKNOWN
     Dates: start: 20040615

REACTIONS (2)
  - LUNG CANCER METASTATIC [None]
  - GRAFT INFECTION [None]
